FAERS Safety Report 7443137-5 (Version None)
Quarter: 2011Q2

REPORT INFORMATION
  Report Type: 
  Country: None (occurrence: None)
  Receive Date: 20110428
  Receipt Date: 20110426
  Transmission Date: 20111010
  Serious: Yes (Death, Hospitalization)
  Sender: FDA-Public Use
  Company Number: A0889426A

PATIENT
  Age: 12 Year
  Sex: Female

DRUGS (3)
  1. ADVAIR DISKUS 100/50 [Suspect]
     Indication: ASTHMA
     Route: 055
     Dates: start: 20040101, end: 20071125
  2. SINGULAIR [Concomitant]
  3. ALBUTEROL [Concomitant]
     Dates: end: 20071125

REACTIONS (3)
  - STATUS ASTHMATICUS [None]
  - HYPOXIC-ISCHAEMIC ENCEPHALOPATHY [None]
  - CARDIAC ARREST [None]
